FAERS Safety Report 12629990 (Version 6)
Quarter: 2016Q4

REPORT INFORMATION
  Report Type: Spontaneous
  Country: JP (occurrence: JP)
  Receive Date: 20160808
  Receipt Date: 20161107
  Transmission Date: 20170207
  Serious: Yes (Hospitalization, Other)
  Sender: FDA-Public Use
  Company Number: JP-PFIZER INC-2016374299

PATIENT
  Age: 67 Year
  Sex: Female

DRUGS (3)
  1. CEFCAPENE PIVOXIL HYDROCHLORIDE [Suspect]
     Active Substance: CEFCAPENE PIVOXIL HYDROCHLORIDE
     Dosage: 100 MG, 1X/DAY
     Route: 048
     Dates: start: 20160728, end: 20160728
  2. BIOFERMIN /01617201/ [Concomitant]
     Active Substance: BACILLUS SUBTILIS\LACTOBACILLUS ACIDOPHILUS\STREPTOCOCCUS FAECAIS
     Dosage: UNKNOWN FREQ.
     Route: 048
     Dates: start: 20160728, end: 20160728
  3. CELECOX [Suspect]
     Active Substance: CELECOXIB
     Indication: POSTOPERATIVE ANALGESIA
     Dosage: 400 MG, 1X/DAY
     Route: 048
     Dates: start: 20160728, end: 20160728

REACTIONS (3)
  - Blood pressure decreased [Unknown]
  - Urticaria [Recovering/Resolving]
  - Gastrointestinal disorder [Unknown]

NARRATIVE: CASE EVENT DATE: 20160728
